FAERS Safety Report 7729639-2 (Version None)
Quarter: 2011Q3

REPORT INFORMATION
  Report Type: 
  Country: None (occurrence: None)
  Receive Date: 20110906
  Receipt Date: 20110823
  Transmission Date: 20111222
  Serious: Yes (Hospitalization)
  Sender: FDA-Public Use
  Company Number: KP-PURDUE-MAG-2011-0001611

PATIENT
  Sex: Male

DRUGS (2)
  1. OXYCODONE HCL [Suspect]
     Indication: PAIN
     Dosage: 40 MG, DAILY
     Route: 048
     Dates: start: 20090810
  2. OXYCODONE HCL [Suspect]

REACTIONS (1)
  - BRAIN STEM INFARCTION [None]
